FAERS Safety Report 8852157 (Version 1)
Quarter: 2012Q4

REPORT INFORMATION
  Report Type: 
  Country: BR (occurrence: BR)
  Receive Date: 20121022
  Receipt Date: 20121022
  Transmission Date: 20130627
  Serious: Yes (Other)
  Sender: FDA-Public Use
  Company Number: BR-PFIZER INC-2012258792

PATIENT
  Sex: Male

DRUGS (1)
  1. FRONTAL XR [Suspect]
     Dosage: 1 mg, UNK
     Route: 048

REACTIONS (5)
  - Intentional drug misuse [Not Recovered/Not Resolved]
  - Speech disorder [Not Recovered/Not Resolved]
  - Feeling drunk [Not Recovered/Not Resolved]
  - Fall [Not Recovered/Not Resolved]
  - Asthenopia [Not Recovered/Not Resolved]
